FAERS Safety Report 12550275 (Version 2)
Quarter: 2016Q3

REPORT INFORMATION
  Report Type: Report from Study
  Country: AR (occurrence: AR)
  Receive Date: 20160712
  Receipt Date: 20160726
  Transmission Date: 20161109
  Serious: Yes (Hospitalization)
  Sender: FDA-Public Use
  Company Number: PHHY2016AR094169

PATIENT
  Age: 15 Year
  Sex: Male
  Weight: 36 kg

DRUGS (4)
  1. EXJADE [Suspect]
     Active Substance: DEFERASIROX
     Dosage: 1250 MG (35 MG/KG), QD
     Route: 065
     Dates: start: 201602, end: 20160505
  2. EXJADE [Suspect]
     Active Substance: DEFERASIROX
     Indication: CONGENITAL APLASTIC ANAEMIA
     Dosage: 500 MG, QD
     Route: 065
     Dates: start: 2008
  3. EXJADE [Suspect]
     Active Substance: DEFERASIROX
     Dosage: 1000 MG (30 MG/KG), QD
     Route: 065
  4. EXJADE [Suspect]
     Active Substance: DEFERASIROX
     Dosage: 5000 MG (15 MG/KG), QD
     Route: 065

REACTIONS (19)
  - Pyrexia [Recovering/Resolving]
  - Fanconi syndrome [Unknown]
  - Blood potassium decreased [Recovering/Resolving]
  - Muscular weakness [Unknown]
  - Vomiting [Recovering/Resolving]
  - Liver disorder [Recovered/Resolved]
  - Headache [Recovering/Resolving]
  - Iron overload [Recovering/Resolving]
  - Dehydration [Recovering/Resolving]
  - Asthenia [Unknown]
  - Weight decreased [Recovered/Resolved]
  - Food intolerance [Unknown]
  - Malaise [Unknown]
  - Renal disorder [Recovered/Resolved]
  - Blood calcium decreased [Recovering/Resolving]
  - Hypokinesia [Recovering/Resolving]
  - Speech disorder [Unknown]
  - Abdominal pain upper [Recovering/Resolving]
  - Renal tubular disorder [Unknown]

NARRATIVE: CASE EVENT DATE: 20160505
